FAERS Safety Report 10358056 (Version 1)
Quarter: 2014Q3

REPORT INFORMATION
  Report Type: Spontaneous
  Country: US (occurrence: None)
  Receive Date: 20140730
  Receipt Date: 20140730
  Transmission Date: 20150326
  Serious: Yes (Other)
  Sender: FDA-Public Use
  Company Number: US-H14001-14-00308

PATIENT
  Sex: Female

DRUGS (3)
  1. FLUDROCORTISONE (FLUDROCORTISONE) (FLUDROCORTISONE) [Concomitant]
  2. HYDROCORTISONE (HYDROCORTISONE) [Suspect]
     Active Substance: HYDROCORTISONE
     Indication: ADRENOGENITAL SYNDROME
  3. ETHOSUXIMIDE. [Suspect]
     Active Substance: ETHOSUXIMIDE
     Indication: PETIT MAL EPILEPSY

REACTIONS (5)
  - Generalised tonic-clonic seizure [None]
  - Adrenal suppression [None]
  - Cushingoid [None]
  - Drug interaction [None]
  - Hyperandrogenism [None]
